FAERS Safety Report 8343487-4 (Version None)
Quarter: 2012Q2

REPORT INFORMATION
  Report Type: 
  Country: None (occurrence: None)
  Receive Date: 20120508
  Receipt Date: 20120504
  Transmission Date: 20120825
  Serious: Yes (Death)
  Sender: FDA-Public Use
  Company Number: PHEH2012US009576

PATIENT
  Sex: Male

DRUGS (11)
  1. ADVAIR DISKUS 100/50 [Concomitant]
  2. MINOXIDIL [Concomitant]
     Dosage: 10 MG, UNK
  3. AFINITOR [Suspect]
     Dosage: 1 TABLET, EVERY DAY
     Route: 048
  4. PROAIR HFA (ALBUTEROL SULFATE) INHALATION AEROSOL [Concomitant]
  5. LABETALOL HCL [Concomitant]
     Dosage: 100 MG, UNK
  6. ATIVAN [Concomitant]
     Dosage: 1 MG, UNK
  7. PREDNISONE TAB [Concomitant]
     Dosage: 5 MG, UNK
  8. CITALOPRAM HYDROBROMIDE [Concomitant]
     Dosage: 20 MG, UNK
  9. KEPPRA [Concomitant]
     Dosage: 500 MG, UNK
  10. DIOVAN [Concomitant]
     Dosage: 160 MG, UNK
  11. HYDROCODONE BITARTRATE AND ACETAMINOPHEN [Concomitant]

REACTIONS (1)
  - RENAL CANCER [None]
